FAERS Safety Report 17985647 (Version 2)
Quarter: 2020Q3

REPORT INFORMATION
  Report Type: Spontaneous
  Country: IT (occurrence: IT)
  Receive Date: 20200706
  Receipt Date: 20200715
  Transmission Date: 20201103
  Serious: Yes (Life-Threatening, Other)
  Sender: FDA-Public Use
  Company Number: IT-OTSUKA-2020_016159

PATIENT
  Age: 41 Year
  Sex: Female

DRUGS (3)
  1. DIAZEPAM. [Suspect]
     Active Substance: DIAZEPAM
     Indication: DRUG ABUSE
     Dosage: 100 MG, (1 TOTAL)
     Route: 048
  2. MINIAS [Suspect]
     Active Substance: LORMETAZEPAM
     Indication: DRUG ABUSE
     Dosage: 100 MG, (1 TOTAL)
     Route: 048
  3. ABILIFY [Suspect]
     Active Substance: ARIPIPRAZOLE
     Indication: DRUG ABUSE
     Dosage: 150 MG, (1 TOTAL) (STRENGTH:1MG/ML)
     Route: 048

REACTIONS (4)
  - Suicide attempt [Recovering/Resolving]
  - Intentional self-injury [Recovering/Resolving]
  - Somnolence [Recovering/Resolving]
  - Drug abuse [Unknown]

NARRATIVE: CASE EVENT DATE: 20200623
